FAERS Safety Report 14145517 (Version 1)
Quarter: 2017Q4

REPORT INFORMATION
  Report Type: Spontaneous
  Country: US (occurrence: US)
  Receive Date: 20171030
  Receipt Date: 20171030
  Transmission Date: 20180321
  Serious: Yes (Disabling, Other)
  Sender: FDA-Public Use
  Company Number: None

PATIENT
  Age: 50 Year
  Sex: Female
  Weight: 72 kg

DRUGS (9)
  1. GENERIC NORCO HYDROCODONE-ACETAMINOPHEN 10-325 MG NORCO [Suspect]
     Active Substance: ACETAMINOPHEN\HYDROCODONE BITARTRATE
     Indication: EXOSTOSIS
     Dosage: ?          QUANTITY:1 TABLET(S);?
     Route: 048
  2. NAPROXEN. [Concomitant]
     Active Substance: NAPROXEN
  3. GENERIC NORCO HYDROCODONE-ACETAMINOPHEN 10-325 MG NORCO [Suspect]
     Active Substance: ACETAMINOPHEN\HYDROCODONE BITARTRATE
     Indication: INTERVERTEBRAL DISC DEGENERATION
     Dosage: ?          QUANTITY:1 TABLET(S);?
     Route: 048
  4. SSRI^S [Concomitant]
  5. TRAMADOL HYDROCHLORIDE AND ACETAMINOPHEN [Concomitant]
     Active Substance: ACETAMINOPHEN\TRAMADOL HYDROCHLORIDE
  6. GENERIC NORCO HYDROCODONE-ACETAMINOPHEN 10-325 MG NORCO [Suspect]
     Active Substance: ACETAMINOPHEN\HYDROCODONE BITARTRATE
     Indication: ARTHRITIS
     Dosage: ?          QUANTITY:1 TABLET(S);?
     Route: 048
  7. PENICILLIN [Concomitant]
     Active Substance: PENICILLIN
  8. CYMBALTA [Concomitant]
     Active Substance: DULOXETINE HYDROCHLORIDE
  9. LYRICA [Concomitant]
     Active Substance: PREGABALIN

REACTIONS (7)
  - Lip swelling [None]
  - Vomiting [None]
  - Product substitution issue [None]
  - Nail discolouration [None]
  - Headache [None]
  - Impaired work ability [None]
  - Drug dose omission [None]

NARRATIVE: CASE EVENT DATE: 20171029
